FAERS Safety Report 12994867 (Version 2)
Quarter: 2017Q1

REPORT INFORMATION
  Report Type: Spontaneous
  Country: GR (occurrence: GR)
  Receive Date: 20161202
  Receipt Date: 20170112
  Transmission Date: 20170428
  Serious: Yes (Other)
  Sender: FDA-Public Use
  Company Number: GR-GE HEALTHCARE MEDICAL DIAGNOSTICS-N131-PR-1611L-0028

PATIENT
  Age: 49 Year
  Sex: Female

DRUGS (6)
  1. [I-131] SODIUM IODIDE [Suspect]
     Active Substance: SODIUM IODIDE I-131
     Indication: PAPILLARY THYROID CANCER
     Route: 048
  2. [I-131] SODIUM IODIDE [Suspect]
     Active Substance: SODIUM IODIDE I-131
     Indication: THERAPEUTIC PROCEDURE
     Route: 048
  3. SORAFENIB [Concomitant]
     Active Substance: SORAFENIB
  4. LEVOTHYROXINE. [Concomitant]
     Active Substance: LEVOTHYROXINE
  5. [I-131] SODIUM IODIDE [Suspect]
     Active Substance: SODIUM IODIDE I-131
     Route: 048
  6. [I-131] SODIUM IODIDE [Suspect]
     Active Substance: SODIUM IODIDE I-131
     Indication: DIAGNOSTIC PROCEDURE
     Route: 048

REACTIONS (3)
  - Drug ineffective [Unknown]
  - False negative investigation result [Recovered/Resolved]
  - Off label use [Recovered/Resolved]
